FAERS Safety Report 6078510-3 (Version None)
Quarter: 2009Q1

REPORT INFORMATION
  Report Type: 
  Country: None (occurrence: None)
  Receive Date: 20090211
  Receipt Date: 20090211
  Transmission Date: 20090719
  Serious: Yes (Life-Threatening, Hospitalization, Other)
  Sender: FDA-Public Use
  Company Number: None

PATIENT
  Age: 4 Year
  Sex: Female
  Weight: 15.8759 kg

DRUGS (1)
  1. PHENERGAN VC W/ CODEINE [Suspect]
     Indication: COUGH
     Dosage: 1/4 TEASPOON EVERY 4 TO 6 HOURS PO
     Route: 048
     Dates: start: 20090115, end: 20090202

REACTIONS (2)
  - APHASIA [None]
  - MOVEMENT DISORDER [None]
